FAERS Safety Report 16839378 (Version 1)
Quarter: 2019Q3

REPORT INFORMATION
  Report Type: Spontaneous
  Country: US (occurrence: US)
  Receive Date: 20190923
  Receipt Date: 20190923
  Transmission Date: 20191005
  Serious: Yes (Death, Hospitalization)
  Sender: FDA-Public Use
  Company Number: US-JNJFOC-20190920881

PATIENT
  Sex: Male

DRUGS (4)
  1. XARELTO [Suspect]
     Active Substance: RIVAROXABAN
     Indication: CARDIAC ASSISTANCE DEVICE USER
     Dosage: SERIAL NO: 905164
     Route: 048
     Dates: start: 2018, end: 20190821
  2. MAGNESIUM                          /00123201/ [Concomitant]
     Active Substance: MAGNESIUM HYDROXIDE
  3. LASIX [Concomitant]
     Active Substance: FUROSEMIDE
     Route: 048
  4. POTASSIUM [Concomitant]
     Active Substance: POTASSIUM
     Route: 048

REACTIONS (3)
  - Pain [Unknown]
  - Sepsis [Fatal]
  - Thrombosis [Fatal]

NARRATIVE: CASE EVENT DATE: 20190818
